FAERS Safety Report 8794169 (Version 3)
Quarter: 2012Q4

REPORT INFORMATION
  Report Type: Report from Study
  Country: JP (occurrence: JP)
  Receive Date: 20120917
  Receipt Date: 20121101
  Transmission Date: 20130627
  Serious: Yes (Hospitalization)
  Sender: FDA-Public Use
  Company Number: JP-BAXTER-2012BAX016535

PATIENT
  Age: 63 Year
  Sex: Male
  Weight: 105 kg

DRUGS (9)
  1. SUPRANE [Suspect]
     Indication: NEPHRECTOMY
     Dates: start: 20120719, end: 20120719
  2. REMIFENTANIL HYDROCHLORIDE [Concomitant]
     Indication: INDUCTION OF ANAESTHESIA
     Route: 041
     Dates: start: 20120719, end: 20120719
  3. REMIFENTANIL HYDROCHLORIDE [Concomitant]
     Indication: MAINTENANCE OF ANAESTHESIA
  4. REMIFENTANIL HYDROCHLORIDE [Concomitant]
     Indication: ANALGESIC THERAPY
  5. PROPOFOL [Concomitant]
     Indication: INDUCTION OF ANAESTHESIA
     Route: 042
     Dates: start: 20120719, end: 20120719
  6. ROCURONIUM BROMIDE [Concomitant]
     Indication: MUSCLE RELAXANT THERAPY
     Route: 042
     Dates: start: 20120719, end: 20120719
  7. EPHEDRIN [Concomitant]
     Indication: DRUG USE FOR UNKNOWN INDICATION
     Route: 042
     Dates: start: 20120719, end: 20120719
  8. ROPION [Concomitant]
     Indication: ANALGESIC THERAPY
     Route: 042
     Dates: start: 20120719, end: 20120719
  9. METOCLOPRAMIDE [Concomitant]
     Indication: INFECTION PROPHYLAXIS
     Route: 042
     Dates: start: 20120719, end: 20120719

REACTIONS (1)
  - Crush syndrome [Recovering/Resolving]
